FAERS Safety Report 24193958 (Version 1)
Quarter: 2024Q3

REPORT INFORMATION
  Report Type: Spontaneous
  Country: CN (occurrence: CN)
  Receive Date: 20240809
  Receipt Date: 20240809
  Transmission Date: 20241016
  Serious: Yes (Life-Threatening, Hospitalization)
  Sender: ACCORD
  Company Number: CN-Accord-438956

PATIENT
  Age: 60 Year
  Sex: Male

DRUGS (8)
  1. CAPECITABINE [Suspect]
     Active Substance: CAPECITABINE
     Indication: Adenocarcinoma gastric
     Dosage: ANOTHER 1 COURSE
     Route: 048
     Dates: start: 202104
  2. OXALIPLATIN [Suspect]
     Active Substance: OXALIPLATIN
     Indication: Adenocarcinoma gastric
     Dosage: 6TH COURSE OF CHEMOTHERAPY
     Route: 042
     Dates: start: 20210726
  3. OXALIPLATIN [Suspect]
     Active Substance: OXALIPLATIN
     Indication: Adenocarcinoma gastric
     Dosage: OXP, 240 MG FOR INTRAVENOUSLY GUTTAE ON DAY 1, FIRST 2 COURSES
     Route: 042
     Dates: start: 20210312
  4. OXALIPLATIN [Suspect]
     Active Substance: OXALIPLATIN
     Indication: Adenocarcinoma gastric
     Dosage: 4TH AND 5TH COURSE OF CHEMOTHERAPY
     Route: 042
     Dates: start: 2021
  5. OXALIPLATIN [Suspect]
     Active Substance: OXALIPLATIN
     Indication: Adenocarcinoma gastric
     Route: 042
     Dates: start: 202104
  6. CAPECITABINE [Suspect]
     Active Substance: CAPECITABINE
     Indication: Adenocarcinoma gastric
     Dosage: 2000 MG Q.M. AND 1500 MG Q.N. ORALLY ON DAY 1-14, FIRST TWO COURSES
     Route: 048
     Dates: start: 20210312
  7. CAPECITABINE [Suspect]
     Active Substance: CAPECITABINE
     Indication: Adenocarcinoma gastric
     Dosage: ANOTHER 1 COURSE
     Route: 048
     Dates: start: 2021
  8. CAPECITABINE [Suspect]
     Active Substance: CAPECITABINE
     Indication: Adenocarcinoma gastric
     Dosage: 6TH COURSE OF CHEMOTHERAPY
     Route: 048
     Dates: start: 20210726

REACTIONS (1)
  - Myelodysplastic syndrome [Recovering/Resolving]

NARRATIVE: CASE EVENT DATE: 20210401
